FAERS Safety Report 18927746 (Version 3)
Quarter: 2021Q3

REPORT INFORMATION
  Report Type: Report from Study
  Country: US (occurrence: US)
  Receive Date: 20210223
  Receipt Date: 20210714
  Transmission Date: 20211014
  Serious: No
  Sender: FDA-Public Use
  Company Number: NVSC2021US042411

PATIENT
  Sex: Female

DRUGS (2)
  1. ENTRESTO [Suspect]
     Active Substance: SACUBITRIL\VALSARTAN
     Indication: CARDIAC FAILURE
     Dosage: 1 DF (24.26 MG), BID
     Route: 048
     Dates: start: 2020
  2. ENTRESTO [Suspect]
     Active Substance: SACUBITRIL\VALSARTAN
     Dosage: 0.5 DF (HALF TAB TWICE A DAY), BID
     Route: 048

REACTIONS (5)
  - Wrong technique in product usage process [Unknown]
  - Somnolence [Unknown]
  - Fatigue [Unknown]
  - Peripheral swelling [Recovering/Resolving]
  - Hypotension [Recovering/Resolving]
